FAERS Safety Report 15231366 (Version 2)
Quarter: 2019Q4

REPORT INFORMATION
  Report Type: Spontaneous
  Country: US (occurrence: US)
  Receive Date: 20180802
  Receipt Date: 20191231
  Transmission Date: 20200122
  Serious: No
  Sender: FDA-Public Use
  Company Number: US-PFIZER INC-2018309678

PATIENT
  Age: 64 Year
  Sex: Female

DRUGS (9)
  1. BENZOYL PEROXIDE. [Suspect]
     Active Substance: BENZOYL PEROXIDE
     Dosage: UNK
  2. TIZANIDINE. [Suspect]
     Active Substance: TIZANIDINE
     Dosage: UNK
  3. CELECOXIB. [Suspect]
     Active Substance: CELECOXIB
     Dosage: UNK
  4. PREGABALIN. [Suspect]
     Active Substance: PREGABALIN
     Dosage: UNK
  5. TOLTERODINE TARTRATE. [Suspect]
     Active Substance: TOLTERODINE TARTRATE
     Dosage: UNK
  6. RANITIDINE. [Suspect]
     Active Substance: RANITIDINE
     Dosage: UNK
  7. LACTOSE [Suspect]
     Active Substance: LACTOSE
     Dosage: UNK
  8. FAMOTIDINE. [Suspect]
     Active Substance: FAMOTIDINE
     Dosage: UNK
  9. TAMSULOSIN [Suspect]
     Active Substance: TAMSULOSIN
     Dosage: UNK

REACTIONS (1)
  - Drug hypersensitivity [Unknown]
